FAERS Safety Report 9437422 (Version 1)
Quarter: 2013Q3

REPORT INFORMATION
  Report Type: Spontaneous
  Country: US (occurrence: US)
  Receive Date: 20130802
  Receipt Date: 20130802
  Transmission Date: 20140515
  Serious: No
  Sender: FDA-Public Use
  Company Number: US-BAYER-2013-091695

PATIENT
  Age: 74 Year
  Sex: Male
  Weight: 135 kg

DRUGS (1)
  1. ALEVE TABLET [Suspect]
     Dosage: 2 DF, BID
     Route: 048
     Dates: start: 201305

REACTIONS (2)
  - Extra dose administered [None]
  - Drug effect delayed [None]
